FAERS Safety Report 5972040-2 (Version None)
Quarter: 2008Q4

REPORT INFORMATION
  Report Type: 
  Country: None (occurrence: None)
  Receive Date: 20081201
  Receipt Date: 20080205
  Transmission Date: 20090506
  Serious: No
  Sender: FDA-Public Use
  Company Number: US-TEVA-167213USA

PATIENT
  Sex: Female
  Weight: 24.062 kg

DRUGS (1)
  1. SALBUTAMOL SULFATE INHALATION, 0.09 MG [Suspect]
     Dosage: 2 PUFFS AS NEEDED
     Route: 055

REACTIONS (2)
  - ERYTHEMA [None]
  - URTICARIA [None]
